APPROVED DRUG PRODUCT: IMITREX
Active Ingredient: SUMATRIPTAN SUCCINATE
Strength: EQ 50MG BASE
Dosage Form/Route: TABLET;ORAL
Application: N020132 | Product #003 | TE Code: AB
Applicant: GLAXOSMITHKLINE
Approved: Jun 1, 1995 | RLD: Yes | RS: No | Type: RX